FAERS Safety Report 20477422 (Version 1)
Quarter: 2022Q1

REPORT INFORMATION
  Report Type: Spontaneous
  Country: US (occurrence: US)
  Receive Date: 20220215
  Receipt Date: 20220215
  Transmission Date: 20220423
  Serious: No
  Sender: FDA-Public Use
  Company Number: US-CIPLA LTD.-2021US04453

PATIENT

DRUGS (5)
  1. TENOFOVIR [Suspect]
     Active Substance: TENOFOVIR
     Indication: Antiretroviral therapy
     Dosage: UNK, AT A TOTAL DAILY DOSE OF 1 (COURSE 1)
     Route: 048
  2. EFAVIRENZ [Suspect]
     Active Substance: EFAVIRENZ
     Indication: Antiretroviral therapy
     Dosage: UNK, AT A TOTAL DAILY DOSE OF 1 (COURSE 1)
     Route: 048
  3. LAMIVUDINE [Suspect]
     Active Substance: LAMIVUDINE
     Indication: Antiretroviral therapy
     Dosage: UNK, AT A TOTAL DAILY DOSE OF 1 (COURSE 1)
     Route: 048
  4. ZIDOVUDINE [Suspect]
     Active Substance: ZIDOVUDINE
     Indication: Antiretroviral therapy
     Dosage: UNK, AT A TOTAL DAILY DOSE OF 2 IN THE 38TH WEEK OF THIRD TRIMESTER (COURSE 1)
     Route: 042
  5. ZIDOVUDINE [Suspect]
     Active Substance: ZIDOVUDINE
     Dosage: UNK, AT A TOTAL DAILY DOSE OF 1 IN THE 38TH WEEK OF THIRD TRIMESTER (COURSE 2)
     Route: 042

REACTIONS (2)
  - Exposure during pregnancy [Unknown]
  - No adverse event [Unknown]
